FAERS Safety Report 20005866 (Version 1)
Quarter: 2021Q4

REPORT INFORMATION
  Report Type: Spontaneous
  Country: US (occurrence: US)
  Receive Date: 20211028
  Receipt Date: 20211028
  Transmission Date: 20220304
  Serious: Yes (Death, Hospitalization, Other)
  Sender: FDA-Public Use
  Company Number: US-GILEAD-2021-0554092

PATIENT
  Age: 73 Year
  Sex: Male

DRUGS (1)
  1. TRODELVY [Suspect]
     Active Substance: SACITUZUMAB GOVITECAN-HZIY
     Indication: Bladder cancer stage IV
     Dosage: 1 DOSAGE FORM; C1D1, C1D8
     Route: 042
     Dates: start: 202104

REACTIONS (4)
  - Death [Fatal]
  - Hypotension [Unknown]
  - Neutropenia [Unknown]
  - Diarrhoea [Unknown]
